FAERS Safety Report 19188013 (Version 1)
Quarter: 2021Q2

REPORT INFORMATION
  Report Type: Spontaneous
  Country: US (occurrence: US)
  Receive Date: 20210427
  Receipt Date: 20210427
  Transmission Date: 20210717
  Serious: Yes (Other)
  Sender: FDA-Public Use
  Company Number: US-ALLERGAN-2116082US

PATIENT
  Sex: Male

DRUGS (1)
  1. RAPAFLO [Suspect]
     Active Substance: SILODOSIN
     Indication: BENIGN PROSTATIC HYPERPLASIA

REACTIONS (4)
  - Dysuria [Unknown]
  - Malabsorption [Unknown]
  - Drug ineffective [Unknown]
  - Ileostomy [Unknown]
